FAERS Safety Report 13365847 (Version 1)
Quarter: 2017Q1

REPORT INFORMATION
  Report Type: Spontaneous
  Country: US (occurrence: US)
  Receive Date: 20170323
  Receipt Date: 20170323
  Transmission Date: 20170429
  Serious: No
  Sender: FDA-Public Use
  Company Number: US-WARNER CHILCOTT-2016-002628

PATIENT
  Age: 73 Year
  Sex: Female

DRUGS (1)
  1. ESTRACE [Suspect]
     Active Substance: ESTRADIOL
     Indication: VULVOVAGINAL DRYNESS
     Dosage: 5 G DAILY
     Route: 067
     Dates: start: 20161113

REACTIONS (4)
  - Product use issue [Unknown]
  - Adnexa uteri pain [Not Recovered/Not Resolved]
  - Drug administration error [Unknown]
  - Malaise [Not Recovered/Not Resolved]

NARRATIVE: CASE EVENT DATE: 20161113
